FAERS Safety Report 4847920-1 (Version None)
Quarter: 2005Q4

REPORT INFORMATION
  Report Type: 
  Country: None (occurrence: None)
  Receive Date: 20051206
  Receipt Date: 20051206
  Transmission Date: 20060501
  Serious: Yes (Other)
  Sender: FDA-Public Use
  Company Number: None

PATIENT
  Sex: Male
  Weight: 92 kg

DRUGS (1)
  1. TAXOTERE [Suspect]
     Indication: OESOPHAGEAL CANCER METASTATIC
     Dosage: 75MG  IV
     Route: 042
     Dates: start: 20051202, end: 20051202

REACTIONS (5)
  - DYSPNOEA [None]
  - ERYTHEMA [None]
  - INFUSION RELATED REACTION [None]
  - MALAISE [None]
  - NAUSEA [None]
